FAERS Safety Report 23239770 (Version 1)
Quarter: 2023Q4

REPORT INFORMATION
  Report Type: Spontaneous
  Country: JP (occurrence: JP)
  Receive Date: 20231129
  Receipt Date: 20231129
  Transmission Date: 20240109
  Serious: Yes (Other)
  Sender: FDA-Public Use
  Company Number: JP-PFIZER INC-PV202300190259

PATIENT
  Age: 9 Decade
  Sex: Male

DRUGS (1)
  1. METHYLPREDNISOLONE SODIUM SUCCINATE [Suspect]
     Active Substance: METHYLPREDNISOLONE SODIUM SUCCINATE
     Dosage: 1000 MG, DAILY FOR 3 DAYS

REACTIONS (3)
  - Dyspnoea [Recovering/Resolving]
  - Eyelid ptosis [Recovering/Resolving]
  - Condition aggravated [Recovering/Resolving]
